FAERS Safety Report 13322110 (Version 5)
Quarter: 2017Q2

REPORT INFORMATION
  Report Type: Spontaneous
  Country: AU (occurrence: AU)
  Receive Date: 20170308
  Receipt Date: 20170523
  Transmission Date: 20170830
  Serious: Yes (Other)
  Sender: FDA-Public Use
  Company Number: PHHY2017AU030852

PATIENT
  Sex: Male
  Weight: 5.13 kg

DRUGS (1)
  1. ONDANSETRON. [Suspect]
     Active Substance: ONDANSETRON
     Indication: HYPEREMESIS GRAVIDARUM
     Dosage: MATERNAL DOSE: 8 MG, UNK
     Route: 064
     Dates: start: 20160621, end: 20161213

REACTIONS (3)
  - Pyelocaliectasis [Unknown]
  - Renal disorder [Unknown]
  - Foetal exposure during pregnancy [Unknown]

NARRATIVE: CASE EVENT DATE: 20160621
